FAERS Safety Report 24160567 (Version 6)
Quarter: 2024Q4

REPORT INFORMATION
  Report Type: Spontaneous
  Country: US (occurrence: US)
  Receive Date: 20240801
  Receipt Date: 20241008
  Transmission Date: 20250115
  Serious: No
  Sender: ROCHE
  Company Number: US-ROCHE-10000034341

PATIENT
  Age: 77 Year
  Sex: Male
  Weight: 77.56 kg

DRUGS (5)
  1. NUTROPIN AQ NUSPIN 20 [Suspect]
     Active Substance: SOMATROPIN
     Indication: Growth hormone deficiency
     Dosage: QD 5 TIMES WEEKLY
     Route: 058
     Dates: start: 202406
  2. NUTROPIN AQ NUSPIN 20 [Suspect]
     Active Substance: SOMATROPIN
     Dosage: QD 5 TIMES WEEKLY
     Route: 058
     Dates: start: 202406
  3. NUTROPIN AQ NUSPIN 20 [Suspect]
     Active Substance: SOMATROPIN
     Dosage: QD 5 TIMES WEEKLY
     Route: 058
     Dates: start: 202406
  4. SYNTHROID [Concomitant]
     Active Substance: LEVOTHYROXINE SODIUM
     Route: 048
  5. LIPITOR [Concomitant]
     Active Substance: ATORVASTATIN CALCIUM
     Indication: Blood cholesterol increased

REACTIONS (6)
  - Needle issue [Unknown]
  - Product dose omission issue [Unknown]
  - Device issue [Unknown]
  - Product communication issue [Unknown]
  - Device defective [Unknown]
  - No adverse event [Unknown]
